FAERS Safety Report 19860995 (Version 2)
Quarter: 2022Q4

REPORT INFORMATION
  Report Type: Report from Study
  Country: FR (occurrence: FR)
  Receive Date: 20210920
  Receipt Date: 20221118
  Transmission Date: 20230113
  Serious: Yes (Other)
  Sender: FDA-Public Use
  Company Number: FR-GLAXOSMITHKLINE-FR2021GSK091732

PATIENT
  Age: 49 Year
  Sex: Male
  Weight: 78 kg

DRUGS (8)
  1. METHOTREXATE [Suspect]
     Active Substance: METHOTREXATE
     Indication: Neurodermatitis
     Dosage: 20 MILLIGRAM, QW (20 MG, WE)
     Route: 065
     Dates: start: 201611
  2. METHOTREXATE [Suspect]
     Active Substance: METHOTREXATE
     Dosage: 10 MILLIGRAM, QW (10 MG, WE)
     Route: 065
     Dates: start: 201611
  3. METHOTREXATE [Suspect]
     Active Substance: METHOTREXATE
     Dosage: 20 MILLIGRAM, QW (20 MG, WE)
     Route: 065
     Dates: start: 201611
  4. METHOTREXATE [Suspect]
     Active Substance: METHOTREXATE
     Dosage: 30 MILLIGRAM, QW
     Route: 065
     Dates: start: 201611
  5. METHOTREXATE [Suspect]
     Active Substance: METHOTREXATE
     Dosage: 20 MILLIGRAM, QW
     Route: 065
  6. ALITRETINOIN [Suspect]
     Active Substance: ALITRETINOIN
     Indication: Neurodermatitis
     Dosage: 30 MILLIGRAM, QD (30 MG, 1D)
     Route: 065
     Dates: start: 201712
  7. ALITRETINOIN [Suspect]
     Active Substance: ALITRETINOIN
     Dosage: 10 MILLIGRAM, QD
     Route: 065
  8. ALITRETINOIN [Suspect]
     Active Substance: ALITRETINOIN
     Dosage: 20 MILLIGRAM, QD
     Route: 065

REACTIONS (2)
  - Erysipelas [Unknown]
  - Hypercholesterolaemia [Unknown]
